FAERS Safety Report 16033751 (Version 10)
Quarter: 2020Q2

REPORT INFORMATION
  Report Type: Spontaneous
  Country: JP (occurrence: JP)
  Receive Date: 20190305
  Receipt Date: 20200416
  Transmission Date: 20200713
  Serious: Yes (Hospitalization, Other)
  Sender: FDA-Public Use
  Company Number: JP-AMGEN-JPNSP2019032819

PATIENT
  Age: 66 Year
  Sex: Female
  Weight: 71.6 kg

DRUGS (35)
  1. NESP [Concomitant]
     Active Substance: DARBEPOETIN ALFA
     Dosage: 5 UG, QW
     Route: 042
     Dates: start: 20191214, end: 20200111
  2. EPALRESTAT [Concomitant]
     Active Substance: EPALRESTAT
     Dosage: 50 MILLIGRAM, Q8H
     Route: 048
  3. ADALAT CC [Concomitant]
     Active Substance: NIFEDIPINE
     Dosage: 2 DF, Q12H
     Route: 048
  4. FOSRENOL [Concomitant]
     Active Substance: LANTHANUM CARBONATE
     Dosage: 500 MILLIGRAM, Q8H
     Route: 048
     Dates: start: 20190926
  5. FOSRENOL [Concomitant]
     Active Substance: LANTHANUM CARBONATE
     Dosage: 500 MG, Q8H
     Route: 048
     Dates: start: 20190926, end: 20200225
  6. ATORVASTATIN [ATORVASTATIN CALCIUM] [Concomitant]
     Active Substance: ATORVASTATIN CALCIUM
     Dosage: 10 MILLIGRAM, QD
     Route: 048
  7. MAXACALCITOL [Concomitant]
     Active Substance: MAXACALCITOL
     Dosage: 2.5 UG, Q56H
     Route: 010
     Dates: start: 20191210
  8. VOGLIBOSE SW [Concomitant]
     Dosage: 0.3 MG, Q8H
     Route: 048
  9. ADALAT CC [Concomitant]
     Active Substance: NIFEDIPINE
     Dosage: UNK
     Route: 048
     Dates: start: 20191010
  10. BAYASPIRIN [Concomitant]
     Active Substance: ASPIRIN
     Dosage: 100 MG, EVERYDAY
     Route: 048
  11. FOSRENOL [Concomitant]
     Active Substance: LANTHANUM CARBONATE
     Dosage: 250 MILLIGRAM, Q8H
     Route: 048
     Dates: start: 20180825, end: 20190925
  12. NESP [Concomitant]
     Active Substance: DARBEPOETIN ALFA
     Dosage: 20 UG, QW
     Route: 042
     Dates: start: 20180825, end: 20190413
  13. AZILVA [Concomitant]
     Active Substance: AZILSARTAN KAMEDOXOMIL
     Dosage: 20 MG, EVERYDAY
     Route: 048
  14. ALOSENN [ACHILLEA MILLEFOLIUM;RUBIA TINCTORUM ROOT TINCTURE;SENNA ALEX [Concomitant]
     Active Substance: ACHILLEA MILLEFOLIUM\RUBIA TINCTURE\SENNA FRUIT EXTRACT\SENNA LEAF\TARAXACUM OFFICINALE
     Dosage: 1 GRAM, QD
     Route: 048
  15. NESP [Concomitant]
     Active Substance: DARBEPOETIN ALFA
     Dosage: 20 UG, QW
     Route: 042
     Dates: start: 20200307
  16. MAXACALCITOL [Concomitant]
     Active Substance: MAXACALCITOL
     Dosage: 5 MICROGRAM, 3 TIMES/WK
     Route: 010
     Dates: start: 20161018
  17. ADALAT CC [Concomitant]
     Active Substance: NIFEDIPINE
     Dosage: 2 DOSAGE FORM, Q12H
     Route: 048
  18. FOSRENOL [Concomitant]
     Active Substance: LANTHANUM CARBONATE
     Dosage: 250 MG, Q8H
     Route: 048
     Dates: start: 20180825, end: 20190925
  19. DAIOKANZOTO [Concomitant]
     Active Substance: LICORICE ROOT EXTRACT\RHUBARB
     Dosage: 2.5 G, EVERYDAY
     Route: 048
  20. P-TOL [SUCROFERRIC OXYHYDROXIDE] [Concomitant]
     Indication: HYPERPHOSPHATAEMIA
     Dosage: 750 MILLIGRAM
     Route: 048
     Dates: end: 20180816
  21. NESP [Concomitant]
     Active Substance: DARBEPOETIN ALFA
     Dosage: 20 UG, QW
     Route: 042
     Dates: start: 20180310, end: 20180310
  22. PLAVIX [Concomitant]
     Active Substance: CLOPIDOGREL BISULFATE
     Dosage: 75 MG, EVERYDAY
     Route: 048
  23. LYRICA [Concomitant]
     Active Substance: PREGABALIN
     Dosage: 50 MG, EVERYDAY
     Route: 048
  24. DOXAZOSIN [Concomitant]
     Active Substance: DOXAZOSIN MESYLATE
     Dosage: 2 MILLIGRAM, Q12H
     Route: 048
  25. PARSABIV [Suspect]
     Active Substance: ETELCALCETIDE HYDROCHLORIDE
     Indication: HYPERPARATHYROIDISM SECONDARY
     Dosage: 5 MILLIGRAM, 3 TIMES/WK
     Route: 010
     Dates: start: 20180317, end: 20180324
  26. PARSABIV [Suspect]
     Active Substance: ETELCALCETIDE HYDROCHLORIDE
     Dosage: 2.5 MILLIGRAM, 3 TIMES/WK
     Route: 010
     Dates: start: 20180329
  27. NESP [Concomitant]
     Active Substance: DARBEPOETIN ALFA
     Dosage: 10 UG, QW (UNK-03 MAR 2018)
     Route: 042
     Dates: end: 20180303
  28. NESP [Concomitant]
     Active Substance: DARBEPOETIN ALFA
     Dosage: 30 UG, QW
     Route: 042
     Dates: start: 20180317, end: 20180318
  29. VOGLIBOSE SW [Concomitant]
     Dosage: 0.3 MILLIGRAM, Q8H
     Route: 048
  30. NESP [Concomitant]
     Active Substance: DARBEPOETIN ALFA
     Dosage: 10 MUG, QW
     Route: 042
     Dates: start: 20190420, end: 20191207
  31. NESP [Concomitant]
     Active Substance: DARBEPOETIN ALFA
     Dosage: 10 UG, QW
     Route: 042
     Dates: start: 20200118, end: 20200229
  32. MAXACALCITOL [Concomitant]
     Active Substance: MAXACALCITOL
     Dosage: 5 UG, Q56H
     Route: 010
     Dates: start: 20161018, end: 20191207
  33. EPALRESTAT [Concomitant]
     Active Substance: EPALRESTAT
     Dosage: 50 MG, Q8H
     Route: 048
  34. SODIUM RABEPRAZOLE [Concomitant]
     Active Substance: RABEPRAZOLE SODIUM
     Dosage: 10 MG, EVERYDAY
     Route: 048
  35. RENAGEL [SEVELAMER CARBONATE] [Concomitant]
     Dosage: 750 MILLIGRAM, QD
     Route: 065
     Dates: start: 20180817, end: 20180825

REACTIONS (5)
  - Blood calcium decreased [Recovering/Resolving]
  - Angina unstable [Recovered/Resolved]
  - Angina unstable [Recovered/Resolved]
  - Angina unstable [Recovered/Resolved]
  - Shunt stenosis [Recovered/Resolved]

NARRATIVE: CASE EVENT DATE: 20180605
